FAERS Safety Report 21044560 (Version 1)
Quarter: 2022Q3

REPORT INFORMATION
  Report Type: Report from Study
  Country: US (occurrence: US)
  Receive Date: 20220705
  Receipt Date: 20220705
  Transmission Date: 20221026
  Serious: Yes (Other)
  Sender: FDA-Public Use
  Company Number: US-INCYTE CORPORATION-2018IN008791

PATIENT

DRUGS (20)
  1. JAKAFI [Suspect]
     Active Substance: RUXOLITINIB
     Indication: Myelofibrosis
     Dosage: 10 MILLIGRAM, BID
     Route: 065
     Dates: start: 20150725, end: 20151028
  2. JAKAFI [Suspect]
     Active Substance: RUXOLITINIB
     Dosage: 5 MILLIGRAM, BID
     Route: 065
     Dates: start: 20151028, end: 20180508
  3. JAKAFI [Suspect]
     Active Substance: RUXOLITINIB
     Dosage: 10 MILLIGRAM, BID
     Route: 065
     Dates: start: 20180508, end: 20180604
  4. JAKAFI [Suspect]
     Active Substance: RUXOLITINIB
     Dosage: 10 MILLIGRAM, QD, 5 MILLIGRAM, QD
     Route: 065
     Dates: start: 20180605, end: 20181211
  5. JAKAFI [Suspect]
     Active Substance: RUXOLITINIB
     Dosage: 5 MILLIGRAM, BID
     Route: 065
     Dates: start: 20181211, end: 20190116
  6. JAKAFI [Suspect]
     Active Substance: RUXOLITINIB
     Dosage: 5 MILLIGRAM, BID
     Route: 065
     Dates: start: 20190611
  7. GABAPENTIN [Concomitant]
     Active Substance: GABAPENTIN
     Indication: Bone pain
     Dosage: 600 MILLIGRAM, TID
     Route: 065
     Dates: start: 20150201, end: 20150715
  8. GABAPENTIN [Concomitant]
     Active Substance: GABAPENTIN
     Dosage: 600 MILLIGRAM, PRN
     Route: 065
     Dates: start: 20150715, end: 20151028
  9. ALLOPURINOL [Concomitant]
     Active Substance: ALLOPURINOL
     Indication: Gout
     Dosage: 100 MILLIGRAM, QD
     Route: 065
     Dates: start: 20150101
  10. HYZAAR [Concomitant]
     Active Substance: HYDROCHLOROTHIAZIDE\LOSARTAN POTASSIUM
     Indication: Hypertension
     Dosage: 100 MILLIGRAM, QD
     Route: 065
     Dates: start: 20140217
  11. VITAMIN D3 [Concomitant]
     Active Substance: CHOLECALCIFEROL
     Indication: Supplementation therapy
     Dosage: 1000 UNITS QD
     Route: 065
     Dates: start: 20140217
  12. CALCIUM [Concomitant]
     Active Substance: CALCIUM
     Indication: Supplementation therapy
     Dosage: 600 MILLIGRAM, QD
     Route: 065
     Dates: start: 20140217
  13. COLCHICINE [Concomitant]
     Active Substance: COLCHICINE
     Indication: Gout
     Dosage: 0.6 MILLIGRAM, QD
     Route: 065
     Dates: start: 20150408, end: 20150902
  14. HYDREA [Concomitant]
     Active Substance: HYDROXYUREA
     Indication: Myelofibrosis
     Dosage: 500 MILLIGRAM, QD
     Route: 065
     Dates: start: 20150505, end: 20150725
  15. CLINDAMYCIN [Concomitant]
     Active Substance: CLINDAMYCIN
     Indication: Pain in extremity
     Dosage: UNK UNITS, QD
     Route: 065
     Dates: start: 20190722, end: 20190828
  16. BUDESONIDE [Concomitant]
     Active Substance: BUDESONIDE
     Indication: Asthma
     Dosage: 0.5/2 MG/DL BID
     Route: 065
     Dates: start: 20190610
  17. RANITIDINE HYDROCHLORIDE [Concomitant]
     Active Substance: RANITIDINE HYDROCHLORIDE
     Indication: Product used for unknown indication
     Dosage: 300 MILLIGRAM, QD
     Route: 065
     Dates: start: 20190610
  18. LOSARTAN [Concomitant]
     Active Substance: LOSARTAN
     Indication: Hypertension
     Dosage: 100 MILLIGRAM, QD
     Route: 065
     Dates: start: 20200920
  19. HYDROCHLOROTHIAZIDE [Concomitant]
     Active Substance: HYDROCHLOROTHIAZIDE
     Indication: Hypertension
     Dosage: 25 MILLIGRAM, QD
     Route: 065
     Dates: start: 20190920
  20. CETIRIZINE HCL [Concomitant]
     Active Substance: CETIRIZINE HYDROCHLORIDE
     Indication: Product used for unknown indication
     Dosage: 10 MILLIGRAM
     Route: 065
     Dates: start: 20191215

REACTIONS (24)
  - Rectal haemorrhage [Not Recovered/Not Resolved]
  - Haemorrhagic diathesis [Recovered/Resolved]
  - Angiopathy [Recovered/Resolved]
  - Pain in extremity [Recovered/Resolved]
  - Peripheral swelling [Recovered/Resolved]
  - Myalgia [Recovered/Resolved]
  - Wheezing [Not Recovered/Not Resolved]
  - Rales [Not Recovered/Not Resolved]
  - Spleen palpable [Recovered/Resolved]
  - Skin lesion [Not Recovered/Not Resolved]
  - Myalgia [Not Recovered/Not Resolved]
  - Arthralgia [Recovered/Resolved]
  - Peripheral swelling [Recovered/Resolved]
  - Cough [Recovered/Resolved]
  - Peripheral vascular disorder [Not Recovered/Not Resolved]
  - Asthma [Not Recovered/Not Resolved]
  - Pain in extremity [Recovered/Resolved]
  - Ulcer [Recovered/Resolved]
  - Headache [Recovered/Resolved]
  - Cough [Recovered/Resolved]
  - Arthralgia [Not Recovered/Not Resolved]
  - Anaemia [Recovered/Resolved]
  - Dyspnoea [Recovered/Resolved]
  - Hyperlipidaemia [Not Recovered/Not Resolved]

NARRATIVE: CASE EVENT DATE: 20180605
